FAERS Safety Report 4561739-0 (Version None)
Quarter: 2005Q1

REPORT INFORMATION
  Report Type: 
  Country: None (occurrence: None)
  Receive Date: 20050125
  Receipt Date: 20050114
  Transmission Date: 20050727
  Serious: Yes (Other)
  Sender: FDA-Public Use
  Company Number: 2004087658

PATIENT
  Sex: Female

DRUGS (1)
  1. DILANTIN [Suspect]
     Indication: ILL-DEFINED DISORDER

REACTIONS (3)
  - CEREBROVASCULAR ACCIDENT [None]
  - EPISTAXIS [None]
  - MUSCLE SPASMS [None]
